FAERS Safety Report 25997421 (Version 4)
Quarter: 2025Q4

REPORT INFORMATION
  Report Type: Spontaneous
  Country: JP (occurrence: JP)
  Receive Date: 20251104
  Receipt Date: 20251211
  Transmission Date: 20260117
  Serious: Yes (Death, Other)
  Sender: JOHNSON AND JOHNSON
  Company Number: JP-NShinyaku-EVA20251465201001307081

PATIENT
  Age: 72 Year
  Sex: Male

DRUGS (13)
  1. UPTRAVI [Suspect]
     Active Substance: SELEXIPAG
     Indication: Pulmonary arterial hypertension
     Route: 048
     Dates: start: 20240924, end: 20240927
  2. UPTRAVI [Suspect]
     Active Substance: SELEXIPAG
     Route: 048
     Dates: start: 20240928, end: 20240930
  3. UPTRAVI [Suspect]
     Active Substance: SELEXIPAG
     Route: 048
     Dates: start: 20241001, end: 20241001
  4. UPTRAVI [Suspect]
     Active Substance: SELEXIPAG
     Route: 048
     Dates: start: 20241002, end: 20241006
  5. UPTRAVI [Suspect]
     Active Substance: SELEXIPAG
     Route: 048
     Dates: start: 20241007, end: 202410
  6. UPTRAVI [Suspect]
     Active Substance: SELEXIPAG
     Route: 048
     Dates: start: 202410, end: 20241216
  7. UPTRAVI [Suspect]
     Active Substance: SELEXIPAG
     Route: 048
     Dates: start: 20241217, end: 20250110
  8. UPTRAVI [Suspect]
     Active Substance: SELEXIPAG
     Dosage: UNKNOWN
     Route: 048
  9. UPTRAVI [Suspect]
     Active Substance: SELEXIPAG
     Dosage: INCREASED
     Route: 048
     Dates: start: 20240925, end: 202410
  10. ADCIRCA [Suspect]
     Active Substance: TADALAFIL
     Indication: Pulmonary arterial hypertension
     Route: 048
  11. BERAPROST SODIUM [Concomitant]
     Active Substance: BERAPROST SODIUM
     Indication: Pulmonary arterial hypertension
     Dosage: UNKNOWN
     Route: 048
  12. BERAPROST SODIUM [Concomitant]
     Active Substance: BERAPROST SODIUM
     Dosage: UNKNOWN
     Route: 048
  13. SILDENAFIL CITRATE [Concomitant]
     Active Substance: SILDENAFIL CITRATE
     Indication: Pulmonary arterial hypertension
     Dosage: UNKNOWN
     Route: 048

REACTIONS (9)
  - Cardio-respiratory arrest [Fatal]
  - Pulmonary arterial hypertension [Fatal]
  - Brain natriuretic peptide increased [Fatal]
  - Blood creatinine increased [Unknown]
  - Haemodynamic instability [Unknown]
  - Flushing [Recovered/Resolved]
  - Flushing [Recovered/Resolved]
  - Infection [Unknown]
  - Vital capacity decreased [Unknown]

NARRATIVE: CASE EVENT DATE: 20241001
